FAERS Safety Report 5263721-7 (Version None)
Quarter: 2007Q1

REPORT INFORMATION
  Report Type: 
  Country: None (occurrence: None)
  Receive Date: 20070313
  Receipt Date: 20070302
  Transmission Date: 20070707
  Serious: Yes (Hospitalization, Other)
  Sender: FDA-Public Use
  Company Number: US-JNJFOC-20060705643

PATIENT
  Sex: Male
  Weight: 96.62 kg

DRUGS (3)
  1. REMICADE [Suspect]
     Route: 042
  2. REMICADE [Suspect]
     Route: 042
  3. REMICADE [Suspect]
     Indication: RHEUMATOID ARTHRITIS
     Route: 042

REACTIONS (4)
  - ABSCESS LIMB [None]
  - ARTHROPATHY [None]
  - ROTATOR CUFF SYNDROME [None]
  - STAPHYLOCOCCAL INFECTION [None]
